FAERS Safety Report 11071439 (Version 1)
Quarter: 2015Q2

REPORT INFORMATION
  Report Type: Spontaneous
  Country: US (occurrence: None)
  Receive Date: 20150424
  Receipt Date: 20150424
  Transmission Date: 20150821
  Serious: Yes (Hospitalization, Other)
  Sender: FDA-Public Use
  Company Number: 2015EXPUS00339

PATIENT
  Age: 68 Year
  Sex: Male
  Weight: 68 kg

DRUGS (2)
  1. EXPAREL [Suspect]
     Active Substance: BUPIVACAINE
     Indication: POSTOPERATIVE ANALGESIA
     Route: 030
     Dates: start: 20150212, end: 20150212
  2. XARELTO [Concomitant]
     Active Substance: RIVAROXABAN

REACTIONS (6)
  - Amnesia [None]
  - Weight decreased [None]
  - Subarachnoid haemorrhage [None]
  - Asthenia [None]
  - Subdural haemorrhage [None]
  - Seizure [None]

NARRATIVE: CASE EVENT DATE: 20150212
